FAERS Safety Report 6865924-4 (Version None)
Quarter: 2010Q3

REPORT INFORMATION
  Report Type: 
  Country: None (occurrence: None)
  Receive Date: 20100719
  Receipt Date: 20100705
  Transmission Date: 20110219
  Serious: Yes (Life-Threatening, Other)
  Sender: FDA-Public Use
  Company Number: AUR-APL-2010-01610

PATIENT
  Age: 76 Year
  Sex: Male

DRUGS (1)
  1. SERTRALINE HYDROCHLORIDE [Suspect]
     Dosage: 100MG - DAILY - ORAL
     Route: 048
     Dates: start: 20091127, end: 20091212

REACTIONS (3)
  - APPARENT LIFE THREATENING EVENT [None]
  - DRUG DISPENSING ERROR [None]
  - EPILEPSY [None]
